FAERS Safety Report 8999464 (Version 1)
Quarter: 2013Q1

REPORT INFORMATION
  Report Type: Spontaneous
  Country: US (occurrence: US)
  Receive Date: 20130103
  Receipt Date: 20130103
  Transmission Date: 20140127
  Serious: Yes (Hospitalization)
  Sender: FDA-Public Use
  Company Number: US-GLAXOSMITHKLINE-A1006763A

PATIENT
  Age: 44 Year
  Sex: Male

DRUGS (1)
  1. FLOLAN [Suspect]
     Dosage: 8NGKM CONTINUOUS
     Dates: start: 20120131

REACTIONS (1)
  - Atrial fibrillation [Unknown]
